FAERS Safety Report 23795115 (Version 3)
Quarter: 2024Q2

REPORT INFORMATION
  Report Type: Spontaneous
  Country: US (occurrence: US)
  Receive Date: 20240429
  Receipt Date: 20240628
  Transmission Date: 20240716
  Serious: Yes (Hospitalization, Other)
  Sender: FDA-Public Use
  Company Number: US-SANDOZ-SDZ2024US042542

PATIENT
  Age: 26 Year
  Sex: Female
  Weight: 86 kg

DRUGS (10)
  1. ALPRAZOLAM [Suspect]
     Active Substance: ALPRAZOLAM
     Indication: Anxiety
     Dosage: 0.25 UNK, BID,PRN
     Route: 048
     Dates: start: 20240314
  2. AMITRIPTYLINE [Suspect]
     Active Substance: AMITRIPTYLINE
     Indication: Anxiety
     Dosage: UNK, AT THE HOUR OF SLEEP
     Route: 065
     Dates: start: 20240307
  3. AZATHIOPRINE [Suspect]
     Active Substance: AZATHIOPRINE
     Indication: Immunosuppressant drug therapy
     Dosage: 100 UG, AT THE HOUR OF SLEEP
     Route: 048
     Dates: start: 20230816
  4. MYCOPHENOLATE MOFETIL [Suspect]
     Active Substance: MYCOPHENOLATE MOFETIL
     Dosage: 180 MG, BID
     Route: 048
     Dates: start: 20230629, end: 20230816
  5. MYCOPHENOLATE MOFETIL [Suspect]
     Active Substance: MYCOPHENOLATE MOFETIL
     Indication: Product used for unknown indication
     Dosage: UNK
     Route: 065
     Dates: end: 20230814
  6. MAGNESIUM [Suspect]
     Active Substance: MAGNESIUM
     Indication: Hypomagnesaemia
     Dosage: UNK, QD (25TABLETS)
     Route: 065
     Dates: start: 202404
  7. PREDNISONE [Suspect]
     Active Substance: PREDNISONE
     Indication: Immunosuppressant drug therapy
     Dosage: 5 UG, QD
     Route: 048
     Dates: start: 20210425
  8. PROGRAF [Suspect]
     Active Substance: TACROLIMUS
     Indication: Immunosuppressant drug therapy
     Dosage: 1 UG
     Route: 065
     Dates: start: 20210425
  9. ROCALTROL [Suspect]
     Active Substance: CALCITRIOL
     Indication: Mineral supplementation
     Dosage: 0.5 UG, 3*WEEKS
     Route: 065
     Dates: start: 2021
  10. VITAMIN D [Suspect]
     Active Substance: VITAMIN D NOS
     Indication: Vitamin D deficiency
     Dosage: 2000 IU, QD
     Route: 065

REACTIONS (4)
  - Hypertension [Unknown]
  - Superimposed pre-eclampsia [Unknown]
  - Maternal exposure during pregnancy [Unknown]
  - Clavicle fracture [Unknown]

NARRATIVE: CASE EVENT DATE: 20240402
